FAERS Safety Report 7674140-8 (Version None)
Quarter: 2011Q3

REPORT INFORMATION
  Report Type: 
  Country: None (occurrence: None)
  Receive Date: 20110810
  Receipt Date: 20110727
  Transmission Date: 20111222
  Serious: Yes (Other)
  Sender: FDA-Public Use
  Company Number: US-ELI_LILLY_AND_COMPANY-US201106001524

PATIENT
  Sex: Female

DRUGS (5)
  1. FORTEO [Suspect]
     Indication: OSTEOPOROSIS
     Dosage: 20 UG, QD
     Dates: start: 20100206
  2. VITAMIN TAB [Concomitant]
  3. ASPIRIN [Concomitant]
     Indication: HEADACHE
     Dosage: UNK, PRN
  4. FORTEO [Suspect]
     Dosage: 20 UG, QD
  5. CALCIUM CARBONATE [Concomitant]

REACTIONS (2)
  - MALABSORPTION [None]
  - BREAST CANCER [None]
